FAERS Safety Report 25716923 (Version 1)
Quarter: 2025Q3

REPORT INFORMATION
  Report Type: Spontaneous
  Country: US (occurrence: US)
  Receive Date: 20250822
  Receipt Date: 20250822
  Transmission Date: 20251021
  Serious: No
  Sender: DR REDDYS
  Company Number: US-DRL-USA-USA/2025/07/011732

PATIENT

DRUGS (1)
  1. DIETARY SUPPLEMENT [Suspect]
     Active Substance: DIETARY SUPPLEMENT
     Indication: Product used for unknown indication
     Route: 065

REACTIONS (5)
  - Headache [Recovered/Resolved]
  - Malaise [Recovered/Resolved]
  - Gastrooesophageal reflux disease [Recovered/Resolved]
  - Abdominal pain upper [Recovered/Resolved]
  - Feeling abnormal [Recovered/Resolved]
